FAERS Safety Report 12552945 (Version 9)
Quarter: 2017Q1

REPORT INFORMATION
  Report Type: Report from Study
  Country: DE (occurrence: DE)
  Receive Date: 20160713
  Receipt Date: 20170127
  Transmission Date: 20170428
  Serious: Yes (Hospitalization)
  Sender: FDA-Public Use
  Company Number: DE-SA-2016SA032579

PATIENT
  Age: 28 Year
  Sex: Female
  Weight: 55 kg

DRUGS (2)
  1. LEMTRADA [Suspect]
     Active Substance: ALEMTUZUMAB
     Indication: MULTIPLE SCLEROSIS
     Route: 041
     Dates: start: 20160111, end: 20160115
  2. CHARIVA [Concomitant]
     Indication: CONTRACEPTION
     Route: 048

REACTIONS (9)
  - Menstrual disorder [Unknown]
  - Headache [Not Recovered/Not Resolved]
  - Fatigue [Unknown]
  - Fatigue [Not Recovered/Not Resolved]
  - Cervical conisation [Unknown]
  - Influenza [Recovering/Resolving]
  - Hypothyroidism [Unknown]
  - Menstruation irregular [Unknown]
  - Smear cervix abnormal [Unknown]

NARRATIVE: CASE EVENT DATE: 20160116
